FAERS Safety Report 16634107 (Version 1)
Quarter: 2019Q3

REPORT INFORMATION
  Report Type: Spontaneous
  Country: US (occurrence: US)
  Receive Date: 20190725
  Receipt Date: 20190725
  Transmission Date: 20191004
  Serious: No
  Sender: FDA-Public Use
  Company Number: US-CELGENEUS-USA-20190706435

PATIENT
  Sex: Male

DRUGS (4)
  1. THALOMID [Suspect]
     Active Substance: THALIDOMIDE
     Dosage: 50 MILLIGRAM
     Route: 048
     Dates: start: 201007
  2. THALOMID [Suspect]
     Active Substance: THALIDOMIDE
     Dosage: 50MG- 200MG
     Route: 048
     Dates: start: 200804
  3. THALOMID [Suspect]
     Active Substance: THALIDOMIDE
     Indication: PLASMA CELL MYELOMA
     Dosage: 200 MILLIGRAM
     Route: 048
     Dates: start: 200707
  4. THALOMID [Suspect]
     Active Substance: THALIDOMIDE
     Dosage: BLISTER PAK
     Route: 048
     Dates: start: 20160204

REACTIONS (1)
  - Skin irritation [Not Recovered/Not Resolved]
